FAERS Safety Report 21038068 (Version 1)
Quarter: 2022Q3

REPORT INFORMATION
  Report Type: Spontaneous
  Country: CN (occurrence: CN)
  Receive Date: 20220704
  Receipt Date: 20220704
  Transmission Date: 20221026
  Serious: Yes (Other)
  Sender: FDA-Public Use
  Company Number: CN-AMGEN-CHNSP2022110523

PATIENT
  Age: 15 Year
  Sex: Male

DRUGS (4)
  1. FILGRASTIM [Suspect]
     Active Substance: FILGRASTIM
     Indication: Prophylaxis
     Dosage: 5 MICROGRAM/KILOGRAM (D1-D7)
     Route: 065
  2. VENETOCLAX [Concomitant]
     Active Substance: VENETOCLAX
     Dosage: 100 MILLIGRAM (D1, 200 MG D2 AND 400 MG D3-28)
  3. CYTARABINE [Concomitant]
     Active Substance: CYTARABINE
     Dosage: UNK
  4. ACLARUBICIN [Concomitant]
     Active Substance: ACLARUBICIN
     Dosage: UNK

REACTIONS (2)
  - Neutropenia [Unknown]
  - Thrombocytopenia [Unknown]
